FAERS Safety Report 8537474-0 (Version None)
Quarter: 2012Q3

REPORT INFORMATION
  Report Type: 
  Country: None (occurrence: None)
  Receive Date: 20120725
  Receipt Date: 20120716
  Transmission Date: 20120928
  Serious: Yes (Other)
  Sender: FDA-Public Use
  Company Number: SE-BAXTER-2012BAX011608

PATIENT
  Age: 72 Year

DRUGS (2)
  1. NOREPINEPHRINE BITARTRATE [Concomitant]
     Route: 042
     Dates: start: 20120706, end: 20120706
  2. MANNITOL [Suspect]
     Indication: MEDICATION DILUTION
     Route: 042
     Dates: start: 20120706, end: 20120706

REACTIONS (1)
  - MEDICATION ERROR [None]
